FAERS Safety Report 19983224 (Version 1)
Quarter: 2021Q4

REPORT INFORMATION
  Report Type: Spontaneous
  Country: GR (occurrence: GR)
  Receive Date: 20211021
  Receipt Date: 20211021
  Transmission Date: 20220303
  Serious: Yes (Other)
  Sender: FDA-Public Use
  Company Number: GR-CHE-2021-00025

PATIENT
  Age: 50 Year
  Sex: Male

DRUGS (5)
  1. PACLITAXEL [Suspect]
     Active Substance: PACLITAXEL
     Indication: Penile squamous cell carcinoma
     Dosage: 175 MILLIGRAM/SQ. METER
  2. CISPLATIN [Suspect]
     Active Substance: CISPLATIN
     Indication: Penile squamous cell carcinoma
     Dosage: 25 MILLIGRAM/SQ. METER (FROM DAY 1 TO DAY 3)
  3. IFOSFAMIDE [Suspect]
     Active Substance: IFOSFAMIDE
     Indication: Penile squamous cell carcinoma
     Dosage: 1200 MG/M2  FROM DAY 1 TO DAY 3
  4. IFOSFAMIDE [Suspect]
     Active Substance: IFOSFAMIDE
     Dosage: 1200MG/M2
  5. DEXAMETHASONE [Concomitant]
     Active Substance: DEXAMETHASONE
     Indication: Chemotherapy
     Dosage: UNK

REACTIONS (2)
  - Interstitial lung disease [Recovered/Resolved]
  - Pneumonitis [Recovered/Resolved]
